FAERS Safety Report 7880737 (Version 5)
Quarter: 2013Q3

REPORT INFORMATION
  Report Type: Report from Study
  Country: CA (occurrence: CA)
  Receive Date: 20110331
  Receipt Date: 20130906
  Transmission Date: 20140515
  Serious: Yes (Hospitalization)
  Sender: FDA-Public Use
  Company Number: PHHO2011CA05711

PATIENT
  Age: 63 Year
  Sex: Male
  Weight: 68.2 kg

DRUGS (2)
  1. PLACEBO [Suspect]
     Indication: PANCREATIC NEUROENDOCRINE TUMOUR
     Dosage: 10 MG, UNK
     Dates: start: 20081031, end: 20090414
  2. RAD001C [Suspect]
     Indication: PANCREATIC NEUROENDOCRINE TUMOUR
     Dosage: 10 MG, UNK
     Dates: start: 20090415, end: 20110321

REACTIONS (1)
  - Abdominal pain [Recovered/Resolved]
